FAERS Safety Report 5686967-2 (Version None)
Quarter: 2008Q1

REPORT INFORMATION
  Report Type: 
  Country: None (occurrence: None)
  Receive Date: 20080328
  Receipt Date: 20070620
  Transmission Date: 20080703
  Serious: No
  Sender: FDA-Public Use
  Company Number: US-BAYER-US-2007-023296

PATIENT
  Age: 32 Year
  Sex: Female
  Weight: 54 kg

DRUGS (3)
  1. MIRENA [Suspect]
     Indication: CONTRACEPTION
     Route: 015
     Dates: start: 20070604
  2. ZOLOFT [Concomitant]
  3. VITAMINS NOS [Concomitant]

REACTIONS (1)
  - POST PROCEDURAL HAEMORRHAGE [None]
